FAERS Safety Report 10234188 (Version 1)
Quarter: 2014Q2

REPORT INFORMATION
  Report Type: Report from Study
  Country: US (occurrence: US)
  Receive Date: 20140612
  Receipt Date: 20140612
  Transmission Date: 20141212
  Serious: Yes (Death)
  Sender: FDA-Public Use
  Company Number: US-ABBVIE-14P-163-1245497-00

PATIENT
  Age: 32 Year
  Sex: Male
  Weight: 78 kg

DRUGS (1)
  1. HUMIRA [Suspect]
     Indication: ANKYLOSING SPONDYLITIS
     Route: 058
     Dates: start: 201310

REACTIONS (5)
  - Vomiting [Fatal]
  - Refusal of treatment by patient [Fatal]
  - Rash [Unknown]
  - Rash pustular [Unknown]
  - Skin infection [Unknown]
